FAERS Safety Report 8557404-5 (Version None)
Quarter: 2012Q3

REPORT INFORMATION
  Report Type: 
  Country: None (occurrence: None)
  Receive Date: 20120720
  Receipt Date: 20120711
  Transmission Date: 20120928
  Serious: Yes (Death, Other)
  Sender: FDA-Public Use
  Company Number: 011845

PATIENT
  Age: 23 Year
  Sex: Male

DRUGS (5)
  1. CYCLOPHOSPHAMIDE [Concomitant]
  2. VALGANCICLOVIR HCL [Concomitant]
  3. BUSULFEX [Suspect]
     Dosage: UNK, INTRAVENOUS
     Route: 042
  4. METHOTREXATE SODIUM [Concomitant]
  5. TACROLIMUS [Concomitant]

REACTIONS (9)
  - ENCEPHALOPATHY [None]
  - LIVER ABSCESS [None]
  - CYTOMEGALOVIRUS INFECTION [None]
  - VENOOCCLUSIVE LIVER DISEASE [None]
  - RENAL FAILURE [None]
  - LIVER TRANSPLANT [None]
  - POST PROCEDURAL BILE LEAK [None]
  - GENERAL PHYSICAL HEALTH DETERIORATION [None]
  - HEPATIC ARTERY THROMBOSIS [None]
